FAERS Safety Report 6587989-X (Version None)
Quarter: 2010Q1

REPORT INFORMATION
  Report Type: 
  Country: None (occurrence: None)
  Receive Date: 20100218
  Receipt Date: 20100208
  Transmission Date: 20100710
  Serious: Yes (Life-Threatening, Hospitalization, Other)
  Sender: FDA-Public Use
  Company Number: FR-BRISTOL-MYERS SQUIBB COMPANY-14979041

PATIENT
  Age: 78 Year
  Sex: Female

DRUGS (6)
  1. GLUCOPHAGE [Suspect]
     Route: 048
  2. PREVISCAN [Concomitant]
  3. PRAVASTATIN [Concomitant]
  4. COZAAR [Concomitant]
  5. TARDYFERON [Concomitant]
  6. PANTOPRAZOLE [Concomitant]

REACTIONS (2)
  - LACTIC ACIDOSIS [None]
  - RENAL FAILURE ACUTE [None]
